FAERS Safety Report 8094978-5 (Version None)
Quarter: 2012Q1

REPORT INFORMATION
  Report Type: 
  Country: None (occurrence: None)
  Receive Date: 20120131
  Receipt Date: 20111221
  Transmission Date: 20120608
  Serious: No
  Sender: FDA-Public Use
  Company Number: US-ABBOTT-11P-163-0886113-00

PATIENT
  Sex: Male
  Weight: 62.198 kg

DRUGS (7)
  1. CREON [Suspect]
     Indication: TYPE 2 DIABETES MELLITUS
     Dosage: 2-3 CAPSULES PER DAY
     Dates: start: 20110101
  2. GLIPIZIDE [Concomitant]
     Indication: DIABETES MELLITUS
  3. FINASTERIDE [Concomitant]
     Indication: PROSTATIC DISORDER
  4. INSULIN [Concomitant]
     Indication: DIABETES MELLITUS
  5. LOPID [Concomitant]
     Indication: PRODUCT USED FOR UNKNOWN INDICATION
  6. METFORMIN HCL [Concomitant]
     Indication: DIABETES MELLITUS
  7. FLOMAX [Concomitant]
     Indication: PROSTATIC DISORDER

REACTIONS (3)
  - OFF LABEL USE [None]
  - GASTROOESOPHAGEAL REFLUX DISEASE [None]
  - BLOOD GLUCOSE INCREASED [None]
